FAERS Safety Report 6987611-4 (Version None)
Quarter: 2010Q3

REPORT INFORMATION
  Report Type: 
  Country: None (occurrence: None)
  Receive Date: 20100916
  Receipt Date: 20100914
  Transmission Date: 20110219
  Serious: Yes (Life-Threatening, Hospitalization, Other)
  Sender: FDA-Public Use
  Company Number: CZ-ROXANE LABORATORIES, INC.-2010-RO-01218RO

PATIENT
  Age: 44 Year
  Sex: Male

DRUGS (11)
  1. CYCLOPHOSPHAMIDE [Suspect]
     Indication: DIFFUSE LARGE B-CELL LYMPHOMA STAGE III
     Route: 042
  2. CYCLOPHOSPHAMIDE [Suspect]
  3. PREDNISONE [Suspect]
     Indication: DIFFUSE LARGE B-CELL LYMPHOMA STAGE III
     Dosage: 100 MG
     Route: 048
  4. RITUXIMAB [Suspect]
     Indication: DIFFUSE LARGE B-CELL LYMPHOMA STAGE III
     Route: 042
  5. DOXORUBICIN HCL [Suspect]
     Indication: DIFFUSE LARGE B-CELL LYMPHOMA STAGE III
     Route: 042
  6. DOXORUBICIN HCL [Suspect]
  7. VINCRISTINE [Suspect]
     Indication: DIFFUSE LARGE B-CELL LYMPHOMA STAGE III
     Route: 042
  8. GRANULOCYTE COLONY-STIMULATING FACTOR [Suspect]
     Indication: PROPHYLAXIS
  9. PIPERACILLIN AND TAZOBACTAM [Suspect]
     Indication: PNEUMONIA
  10. AMIKACIN [Suspect]
     Indication: PNEUMONIA
  11. VORICONAZOLE [Suspect]
     Indication: PNEUMONIA

REACTIONS (6)
  - ASPERGILLOSIS [None]
  - CONGESTIVE CARDIOMYOPATHY [None]
  - NEUTROPENIA [None]
  - PNEUMONIA [None]
  - PSEUDOMONAS INFECTION [None]
  - SEPTIC SHOCK [None]
